FAERS Safety Report 6989558-6 (Version None)
Quarter: 2010Q3

REPORT INFORMATION
  Report Type: 
  Country: None (occurrence: None)
  Receive Date: 20100916
  Receipt Date: 20091230
  Transmission Date: 20110219
  Serious: Yes (Other)
  Sender: FDA-Public Use
  Company Number: BR-PFIZER INC-2009305971

PATIENT
  Sex: Female
  Weight: 66 kg

DRUGS (6)
  1. LYRICA [Suspect]
     Indication: BACK PAIN
     Dosage: 75 MG, 2X/DAY
     Route: 048
     Dates: start: 20091101
  2. LYRICA [Suspect]
     Indication: PAIN IN EXTREMITY
  3. LYRICA [Suspect]
     Indication: TENDONITIS
  4. LYRICA [Suspect]
     Indication: BURSITIS
  5. CALCIUM [Concomitant]
     Indication: OSTEOPOROSIS
     Dosage: UNK
  6. CELEBRA [Concomitant]
     Indication: PAIN
     Dosage: UNK
     Dates: start: 20080101

REACTIONS (10)
  - BLISTER [None]
  - DRUG INEFFECTIVE [None]
  - EYE SWELLING [None]
  - LIP SWELLING [None]
  - MALAISE [None]
  - NAUSEA [None]
  - OEDEMA PERIPHERAL [None]
  - POISONING [None]
  - PRURITUS [None]
  - SWELLING FACE [None]
